FAERS Safety Report 13876624 (Version 2)
Quarter: 2018Q2

REPORT INFORMATION
  Report Type: Spontaneous
  Country: US (occurrence: US)
  Receive Date: 20170817
  Receipt Date: 20180615
  Transmission Date: 20180711
  Serious: Yes (Hospitalization, Other)
  Sender: FDA-Public Use
  Company Number: US-GLENMARK PHARMACEUTICALS-2017GMK028470

PATIENT
  Age: 61 Year
  Sex: Female

DRUGS (6)
  1. VORICONAZOLE. [Interacting]
     Active Substance: VORICONAZOLE
     Indication: PNEUMONIA STAPHYLOCOCCAL
     Dosage: 200 MG, BID; 4.5 MG/KG FOR 5 MONTHS
     Route: 048
  2. VORICONAZOLE. [Interacting]
     Active Substance: VORICONAZOLE
     Dosage: 100 MG, BID; 2.2 MG/KG
     Route: 048
  3. ESOMEPRAZOLE [Concomitant]
     Active Substance: ESOMEPRAZOLE
     Indication: PRODUCT USED FOR UNKNOWN INDICATION
     Dosage: 40 MG, OD
     Route: 048
  4. MOMETASONE FUROATE. [Suspect]
     Active Substance: MOMETASONE FUROATE
     Indication: CHRONIC OBSTRUCTIVE PULMONARY DISEASE
     Dosage: 50 MCG, OD
     Route: 045
  5. SALMETEROL/FLUTICASONPROPIONAAT [Interacting]
     Active Substance: FLUTICASONE PROPIONATE\SALMETEROL XINAFOATE
     Indication: CHRONIC SINUSITIS
     Dosage: UNK UNK, BID
     Route: 055
  6. TIOTROPIUM [Concomitant]
     Active Substance: TIOTROPIUM
     Indication: PRODUCT USED FOR UNKNOWN INDICATION
     Dosage: 18 MCG, OD
     Route: 055

REACTIONS (3)
  - Cushing^s syndrome [Recovering/Resolving]
  - Adrenal insufficiency [Recovering/Resolving]
  - Drug interaction [Unknown]
